FAERS Safety Report 14236691 (Version 2)
Quarter: 2018Q1

REPORT INFORMATION
  Report Type: Report from Study
  Country: AR (occurrence: AR)
  Receive Date: 20171129
  Receipt Date: 20180101
  Transmission Date: 20180508
  Serious: Yes (Hospitalization, Other)
  Sender: FDA-Public Use
  Company Number: PHHY2017AR174512

PATIENT
  Sex: Female

DRUGS (5)
  1. ENTRESTO [Suspect]
     Active Substance: SACUBITRIL\VALSARTAN
     Dosage: 100 OT, UNK
     Route: 065
  2. ALDACTONE [Concomitant]
     Active Substance: SPIRONOLACTONE
     Indication: PRODUCT USED FOR UNKNOWN INDICATION
     Dosage: 1.5 DF (1 IN THE MORNING AND HALF IN THE NIGHT)
     Route: 065
  3. ENTRESTO [Suspect]
     Active Substance: SACUBITRIL\VALSARTAN
     Indication: CARDIAC FAILURE CHRONIC
     Dosage: 50 MG, BID
     Route: 065
  4. ENTRESTO [Suspect]
     Active Substance: SACUBITRIL\VALSARTAN
     Dosage: 200 MG, Q12H
     Route: 065
  5. ENTRESTO [Suspect]
     Active Substance: SACUBITRIL\VALSARTAN
     Dosage: 50 MG, Q12H
     Route: 065

REACTIONS (6)
  - Renal disorder [Recovered/Resolved]
  - Injury [Unknown]
  - Rib fracture [Recovering/Resolving]
  - Hypotension [Unknown]
  - Blood urea increased [Recovering/Resolving]
  - Syncope [Unknown]
